FAERS Safety Report 13658984 (Version 1)
Quarter: 2017Q2

REPORT INFORMATION
  Report Type: Spontaneous
  Country: US (occurrence: US)
  Receive Date: 20170616
  Receipt Date: 20170616
  Transmission Date: 20170830
  Serious: No
  Sender: FDA-Public Use
  Company Number: US-TEVA-764987USA

PATIENT
  Sex: Male

DRUGS (1)
  1. DORZOLAMIDE W/TIMOLOL [Suspect]
     Active Substance: DORZOLAMIDE HYDROCHLORIDE\TIMOLOL MALEATE
     Indication: EYE DISORDER
     Dosage: 20 MG/5 MG / ML
     Route: 047

REACTIONS (3)
  - Product packaging issue [Unknown]
  - Eye pain [Unknown]
  - Product formulation issue [Unknown]
